FAERS Safety Report 17334651 (Version 1)
Quarter: 2020Q1

REPORT INFORMATION
  Report Type: Report from Study
  Country: BR (occurrence: BR)
  Receive Date: 20200128
  Receipt Date: 20200128
  Transmission Date: 20200409
  Serious: Yes (Hospitalization, Other)
  Sender: FDA-Public Use
  Company Number: BR-JNJFOC-20200131606

PATIENT
  Sex: Male

DRUGS (2)
  1. BIO-MANGUINHOS INFLIXIMABE [Suspect]
     Active Substance: INFLIXIMAB
     Route: 042
     Dates: start: 201809
  2. BIO-MANGUINHOS INFLIXIMABE [Suspect]
     Active Substance: INFLIXIMAB
     Indication: CROHN^S DISEASE
     Route: 042
     Dates: start: 20180712

REACTIONS (3)
  - Colectomy [Unknown]
  - Crohn^s disease [Unknown]
  - Malnutrition [Unknown]

NARRATIVE: CASE EVENT DATE: 2018
